FAERS Safety Report 16528456 (Version 1)
Quarter: 2019Q3

REPORT INFORMATION
  Report Type: Report from Study
  Country: BR (occurrence: BR)
  Receive Date: 20190704
  Receipt Date: 20190704
  Transmission Date: 20191004
  Serious: Yes (Other)
  Sender: FDA-Public Use
  Company Number: PHHY2019BR151924

PATIENT
  Age: 60 Year
  Sex: Female

DRUGS (3)
  1. ATENOLOL. [Suspect]
     Active Substance: ATENOLOL
     Indication: CARDIAC FAILURE
     Route: 065
  2. SPIROLACTON [Concomitant]
     Indication: CARDIAC FAILURE
     Dosage: UNK
     Route: 065
  3. LOSARTAN. [Suspect]
     Active Substance: LOSARTAN
     Indication: CARDIAC FAILURE
     Route: 065

REACTIONS (4)
  - Condition aggravated [Unknown]
  - Drug intolerance [Unknown]
  - Cardiac dysfunction [Unknown]
  - Cardiac failure [Unknown]
